FAERS Safety Report 9373390 (Version 1)
Quarter: 2013Q2

REPORT INFORMATION
  Report Type: Spontaneous
  Country: PH (occurrence: PH)
  Receive Date: 20130627
  Receipt Date: 20130627
  Transmission Date: 20140414
  Serious: Yes (Hospitalization)
  Sender: FDA-Public Use
  Company Number: PH-MERCK-1306PHL013387

PATIENT
  Sex: Female

DRUGS (1)
  1. HYZAAR [Suspect]
     Dosage: 1 DF, QD

REACTIONS (1)
  - Hospitalisation [Unknown]
